FAERS Safety Report 25157219 (Version 1)
Quarter: 2025Q2

REPORT INFORMATION
  Report Type: Spontaneous
  Country: PL (occurrence: PL)
  Receive Date: 20250403
  Receipt Date: 20250403
  Transmission Date: 20250717
  Serious: Yes (Other)
  Sender: ALEXION PHARMACEUTICALS
  Company Number: None

PATIENT
  Age: 11 Year

DRUGS (3)
  1. OMEPRAZOLE [Suspect]
     Active Substance: OMEPRAZOLE
     Indication: Chest pain
  2. IBUPROFEN [Suspect]
     Active Substance: IBUPROFEN
     Indication: Chest pain
  3. COLCHICINE [Suspect]
     Active Substance: COLCHICINE
     Indication: Chest pain

REACTIONS (13)
  - Conjunctivitis [Unknown]
  - Condition aggravated [Unknown]
  - N-terminal prohormone brain natriuretic peptide increased [Unknown]
  - Normocytic anaemia [Unknown]
  - Leukopenia [Unknown]
  - C-reactive protein increased [Unknown]
  - Red blood cell sedimentation rate increased [Unknown]
  - Complement factor C3 decreased [Unknown]
  - Complement factor C4 decreased [Unknown]
  - Antinuclear antibody positive [Unknown]
  - Antineutrophil cytoplasmic antibody [Unknown]
  - Off label use [Unknown]
  - Antiphospholipid antibodies [Unknown]
